FAERS Safety Report 4803885-X (Version None)
Quarter: 2005Q3

REPORT INFORMATION
  Report Type: 
  Country: None (occurrence: None)
  Receive Date: 20050920
  Receipt Date: 20050628
  Transmission Date: 20060218
  Serious: No
  Sender: FDA-Public Use
  Company Number: US-YAMANOUCHI-YPA20050318

PATIENT
  Age: 55 Year
  Sex: Female

DRUGS (16)
  1. VESICARE [Suspect]
     Indication: BLADDER SPASM
     Dosage: 5 MG QD PO
     Route: 048
     Dates: end: 20050401
  2. VESICARE [Suspect]
     Indication: HYPERTONIC BLADDER
     Dosage: 5 MG QD PO
     Route: 048
     Dates: end: 20050401
  3. VESICARE [Suspect]
     Indication: URINARY INCONTINENCE
     Dosage: 5 MG QD PO
     Route: 048
     Dates: end: 20050401
  4. VESICARE [Suspect]
     Indication: BLADDER SPASM
     Dosage: 10 MG QD PO
     Route: 048
     Dates: start: 20050401, end: 20050501
  5. VESICARE [Suspect]
     Indication: HYPERTONIC BLADDER
     Dosage: 10 MG QD PO
     Route: 048
     Dates: start: 20050401, end: 20050501
  6. VESICARE [Suspect]
     Indication: URINARY INCONTINENCE
     Dosage: 10 MG QD PO
     Route: 048
     Dates: start: 20050401, end: 20050501
  7. VESICARE [Suspect]
     Indication: BLADDER SPASM
     Dosage: 10 MG QD PO
     Route: 048
     Dates: start: 20050504
  8. VESICARE [Suspect]
     Indication: HYPERTONIC BLADDER
     Dosage: 10 MG QD PO
     Route: 048
     Dates: start: 20050504
  9. VESICARE [Suspect]
     Indication: URINARY INCONTINENCE
     Dosage: 10 MG QD PO
     Route: 048
     Dates: start: 20050504
  10. ZETIA [Concomitant]
  11. CENNESTIN [Concomitant]
  12. BETAPACE [Concomitant]
  13. CRESTOR [Concomitant]
  14. FOLIC ACID [Concomitant]
  15. FOSAMAX [Concomitant]
  16. CITRUCEL [Concomitant]

REACTIONS (3)
  - CONSTIPATION [None]
  - DRUG INEFFECTIVE [None]
  - DRY EYE [None]
